FAERS Safety Report 9292681 (Version 1)
Quarter: 2013Q2

REPORT INFORMATION
  Report Type: Spontaneous
  Country: US (occurrence: None)
  Receive Date: 20130515
  Receipt Date: 20130515
  Transmission Date: 20140414
  Serious: Yes (Other)
  Sender: FDA-Public Use
  Company Number: None

PATIENT
  Age: 76 Year
  Sex: Female
  Weight: 72.58 kg

DRUGS (1)
  1. DEXILANT [Suspect]
     Indication: DYSPEPSIA
     Dosage: ONE  ER DAY  ?
     Dates: start: 20130418

REACTIONS (5)
  - Diarrhoea [None]
  - Headache [None]
  - Formication [None]
  - Muscle spasms [None]
  - Nightmare [None]
